FAERS Safety Report 12956509 (Version 2)
Quarter: 2016Q4

REPORT INFORMATION
  Report Type: Spontaneous
  Country: US (occurrence: US)
  Receive Date: 20161118
  Receipt Date: 20161123
  Transmission Date: 20170207
  Serious: Yes (Other)
  Sender: FDA-Public Use
  Company Number: US-SAOL THERAPEUTICS-2016SAO01065

PATIENT
  Age: 48 Year
  Sex: Female

DRUGS (6)
  1. LIORESAL [Suspect]
     Active Substance: BACLOFEN
     Indication: MUSCLE SPASTICITY
     Dosage: 174-150 ?G, \DAY
     Route: 037
     Dates: start: 20161020, end: 20161111
  2. BACLOFEN. [Suspect]
     Active Substance: BACLOFEN
     Dosage: 20 MG, 6X/DAY
     Route: 048
  3. UNSPECIFIED BOWEL MAINTENANCE MEDICATIONS [Concomitant]
  4. GABLOFEN [Suspect]
     Active Substance: BACLOFEN
     Dosage: 200 ?G, \DAY
     Route: 037
     Dates: start: 20161115
  5. LIORESAL [Suspect]
     Active Substance: BACLOFEN
     Indication: HEAD INJURY
  6. GABLOFEN [Suspect]
     Active Substance: BACLOFEN
     Dosage: 150?G, \DAY
     Route: 037
     Dates: start: 20161111, end: 20161115

REACTIONS (4)
  - Hypertonia [Unknown]
  - Therapy non-responder [Unknown]
  - Somnolence [Unknown]
  - Drug withdrawal syndrome [Unknown]

NARRATIVE: CASE EVENT DATE: 2016
